FAERS Safety Report 19012077 (Version 1)
Quarter: 2021Q1

REPORT INFORMATION
  Report Type: Spontaneous
  Country: FR (occurrence: FR)
  Receive Date: 20210315
  Receipt Date: 20210315
  Transmission Date: 20210420
  Serious: Yes (Hospitalization)
  Sender: FDA-Public Use
  Company Number: FR-TEVA-2021-FR-1889353

PATIENT
  Age: 70 Year
  Sex: Male

DRUGS (2)
  1. BACTRIM [Suspect]
     Active Substance: SULFAMETHOXAZOLE\TRIMETHOPRIM
     Indication: SKIN ULCER
     Dosage: 1 DF
     Route: 048
     Dates: start: 20201203, end: 20201210
  2. LEVOFLOXACINE [Suspect]
     Active Substance: LEVOFLOXACIN
     Indication: SKIN ULCER
     Dosage: 750 MG
     Route: 048
     Dates: start: 20201203, end: 20201208

REACTIONS (2)
  - Hepatocellular injury [Recovered/Resolved]
  - Cholestasis [Not Recovered/Not Resolved]

NARRATIVE: CASE EVENT DATE: 20201208
